FAERS Safety Report 26063873 (Version 1)
Quarter: 2025Q4

REPORT INFORMATION
  Report Type: Spontaneous
  Country: US (occurrence: US)
  Receive Date: 20251119
  Receipt Date: 20251119
  Transmission Date: 20260117
  Serious: Yes (Other)
  Sender: TEVA
  Company Number: US-TEVA-VS-3393406

PATIENT
  Age: 59 Year
  Sex: Female

DRUGS (2)
  1. DILTIAZEM [Suspect]
     Active Substance: DILTIAZEM
     Indication: Product used for unknown indication
     Route: 065
  2. LOSARTAN [Suspect]
     Active Substance: LOSARTAN
     Indication: Product used for unknown indication
     Route: 065

REACTIONS (8)
  - Oxygen consumption increased [Unknown]
  - Fatigue [Unknown]
  - Hypotension [Recovered/Resolved]
  - Dizziness [Unknown]
  - Flushing [Unknown]
  - Diarrhoea [Unknown]
  - Chest pain [Unknown]
  - Cough [Unknown]

NARRATIVE: CASE EVENT DATE: 20250101
